FAERS Safety Report 8837337 (Version 1)
Quarter: 2012Q4

REPORT INFORMATION
  Report Type: Report from Study
  Country: FR (occurrence: FR)
  Receive Date: 20121011
  Receipt Date: 20121011
  Transmission Date: 20130627
  Serious: Yes (Hospitalization)
  Sender: FDA-Public Use
  Company Number: FR-ROCHE-1140109

PATIENT
  Sex: Male
  Weight: 90 kg

DRUGS (5)
  1. CELLCEPT [Suspect]
     Indication: RENAL TRANSPLANT
     Route: 048
     Dates: start: 20110822
  2. METHYL PREDNISOLONE [Suspect]
     Indication: PRODUCT USED FOR UNKNOWN INDICATION
     Route: 042
     Dates: start: 20110822, end: 20110822
  3. EVEROLIMUS [Suspect]
     Indication: PRODUCT USED FOR UNKNOWN INDICATION
     Route: 065
     Dates: start: 20110827
  4. PREDNISONE [Suspect]
     Indication: PRODUCT USED FOR UNKNOWN INDICATION
     Route: 048
     Dates: start: 20110823
  5. ANTI-THYMOCYTE GLOBULIN (RABBIT) NOS [Suspect]
     Indication: PRODUCT USED FOR UNKNOWN INDICATION
     Route: 042
     Dates: start: 20110823

REACTIONS (8)
  - Perirenal haematoma [Recovered/Resolved]
  - Transplant rejection [Not Recovered/Not Resolved]
  - Transplant rejection [Not Recovered/Not Resolved]
  - Septic shock [Recovered/Resolved]
  - Renal failure [Recovered/Resolved]
  - Enterobacter sepsis [Recovered/Resolved]
  - Klebsiella sepsis [Recovered/Resolved]
  - Staphylococcal sepsis [Recovered/Resolved]
